FAERS Safety Report 15126804 (Version 2)
Quarter: 2018Q3

REPORT INFORMATION
  Report Type: Spontaneous
  Country: IT (occurrence: IT)
  Receive Date: 20180710
  Receipt Date: 20180809
  Transmission Date: 20181010
  Serious: Yes (Other)
  Sender: FDA-Public Use
  Company Number: IT-OTSUKA-2018_018298

PATIENT
  Age: 22 Year
  Sex: Female

DRUGS (3)
  1. LITHIUM CARBONATE. [Concomitant]
     Active Substance: LITHIUM CARBONATE
     Indication: PRODUCT USED FOR UNKNOWN INDICATION
     Dosage: 600 MG, QD
     Route: 048
  2. VALPROIC ACID. [Concomitant]
     Active Substance: VALPROIC ACID
     Indication: PRODUCT USED FOR UNKNOWN INDICATION
     Dosage: 500 MG, QD
     Route: 048
  3. ARIPIPRAZOLE. [Suspect]
     Active Substance: ARIPIPRAZOLE
     Indication: MANIA
     Dosage: 35 MG, UNK (OVERDOSE)
     Route: 048

REACTIONS (7)
  - Product use in unapproved indication [Unknown]
  - Intentional self-injury [Recovering/Resolving]
  - Vomiting [Unknown]
  - Toxicity to various agents [Recovering/Resolving]
  - Drug abuse [Unknown]
  - Anxiety [Unknown]
  - Overdose [Unknown]

NARRATIVE: CASE EVENT DATE: 20180511
